FAERS Safety Report 9513688 (Version 2)
Quarter: 2013Q4

REPORT INFORMATION
  Report Type: Spontaneous
  Country: US (occurrence: US)
  Receive Date: 20130910
  Receipt Date: 20131114
  Transmission Date: 20140711
  Serious: Yes (Hospitalization, Other)
  Sender: FDA-Public Use
  Company Number: US-BAYER-2013-107479

PATIENT
  Age: 25 Year
  Sex: Female
  Weight: 58.96 kg

DRUGS (1)
  1. MIRENA [Suspect]
     Indication: CONTRACEPTION
     Dosage: 20 MCG/24HR, CONT
     Route: 015
     Dates: start: 20110325, end: 20130412

REACTIONS (12)
  - Uterine perforation [None]
  - Abdominal pain lower [None]
  - Emotional distress [None]
  - Injury [None]
  - Device dislocation [None]
  - Procedural pain [None]
  - Discomfort [None]
  - Polymenorrhagia [None]
  - Inappropriate schedule of drug administration [None]
  - Crying [None]
  - Device issue [None]
  - Vulvovaginal pain [None]
